FAERS Safety Report 9170662 (Version 1)
Quarter: 2013Q1

REPORT INFORMATION
  Report Type: Spontaneous
  Country: US (occurrence: None)
  Receive Date: 20130312
  Receipt Date: 20130312
  Transmission Date: 20140127
  Serious: No
  Sender: FDA-Public Use
  Company Number: TPA2013A01247

PATIENT
  Age: 78 Year
  Sex: Male
  Weight: 97.52 kg

DRUGS (4)
  1. ACTOS (PIOGLITAZONE HYDROCHLORIDE) [Suspect]
     Indication: TYPE 2 DIABETES MELLITUS
     Dates: start: 20080609, end: 20111010
  2. AVANDIA (ROSIGLITA-ZONE MALEATE) [Concomitant]
  3. GLUCOTROL (GLIPIZIDE) [Concomitant]
  4. JANUVIA (SITAGLIPTIN PHOSPHATE) [Concomitant]

REACTIONS (3)
  - Bladder cancer [None]
  - Bladder transitional cell carcinoma [None]
  - Bladder cancer recurrent [None]
